FAERS Safety Report 13828225 (Version 2)
Quarter: 2017Q3

REPORT INFORMATION
  Report Type: Spontaneous
  Country: JP (occurrence: JP)
  Receive Date: 20170803
  Receipt Date: 20170814
  Transmission Date: 20171127
  Serious: Yes (Death)
  Sender: FDA-Public Use
  Company Number: JP-SUN PHARMACEUTICAL INDUSTRIES LTD-2017RR-146579

PATIENT
  Age: 66 Year
  Sex: Male

DRUGS (6)
  1. FLUOROURACIL. [Suspect]
     Active Substance: FLUOROURACIL
     Indication: METASTATIC NEOPLASM
     Dosage: TREATMENT WAS REPEATED EVERY 2 WEEKS
     Route: 065
     Dates: start: 201502, end: 201509
  2. CALCIUM FOLINAT [Suspect]
     Active Substance: LEUCOVORIN CALCIUM
     Indication: METASTATIC NEOPLASM
     Dosage: TREATMENT WAS REPEATED EVERY 2 WEEKS
     Route: 065
     Dates: start: 201502, end: 201509
  3. DENOSUMAB [Concomitant]
     Active Substance: DENOSUMAB
     Indication: METASTASES TO BONE
     Dosage: UNK
     Route: 065
     Dates: start: 201502
  4. NAFAMOSTAT MESILATE [Concomitant]
     Active Substance: NAFAMOSTAT MESYLATE
     Indication: DISSEMINATED INTRAVASCULAR COAGULATION
     Dosage: UNK
     Route: 042
  5. OXALIPLATIN. [Suspect]
     Active Substance: OXALIPLATIN
     Indication: METASTATIC NEOPLASM
     Dosage: TREATMENT WAS REPEATED EVERY 2 WEEKS
     Route: 065
     Dates: start: 201502, end: 201509
  6. FLUOROURACIL. [Suspect]
     Active Substance: FLUOROURACIL
     Indication: METASTATIC NEOPLASM
     Dosage: TREATMENT WAS REPEATED EVERY 2 WEEKS; BOLUS
     Route: 065
     Dates: start: 201502, end: 201509

REACTIONS (3)
  - Disease progression [Fatal]
  - Decreased appetite [Unknown]
  - Diarrhoea [Unknown]
